FAERS Safety Report 19023936 (Version 4)
Quarter: 2021Q1

REPORT INFORMATION
  Report Type: Spontaneous
  Country: CA (occurrence: CA)
  Receive Date: 20210318
  Receipt Date: 20210331
  Transmission Date: 20210420
  Serious: Yes (Other)
  Sender: FDA-Public Use
  Company Number: CA-CELLTRION INC.-2021CA003459

PATIENT

DRUGS (6)
  1. INFLECTRA [Suspect]
     Active Substance: INFLIXIMAB-DYYB
     Indication: COLITIS ULCERATIVE
     Dosage: UNK, WEEK 0 DOSE
     Route: 042
     Dates: start: 2020, end: 2020
  2. INFLECTRA [Suspect]
     Active Substance: INFLIXIMAB-DYYB
     Dosage: 300 MG, WEEK 6 DOSE
     Route: 042
     Dates: start: 20210119, end: 20210119
  3. PREDNISONE. [Concomitant]
     Active Substance: PREDNISONE
     Dosage: 40 MG
  4. INFLECTRA [Suspect]
     Active Substance: INFLIXIMAB-DYYB
     Dosage: UNK, WEEK 2 DOSE
     Route: 042
     Dates: start: 20201215, end: 20201215
  5. PANTOPRAZOLE [Concomitant]
     Active Substance: PANTOPRAZOLE
     Dosage: 40 MG
  6. PENTASA [Concomitant]
     Active Substance: MESALAMINE
     Dosage: 3 G, 1X/DAY

REACTIONS (3)
  - Inappropriate schedule of product administration [Unknown]
  - Eye infection [Recovered/Resolved]
  - Hordeolum [Not Recovered/Not Resolved]
